FAERS Safety Report 22076986 (Version 3)
Quarter: 2023Q1

REPORT INFORMATION
  Report Type: Other
  Country: JP (occurrence: JP)
  Receive Date: 20230309
  Receipt Date: 20230323
  Transmission Date: 20230418
  Serious: Yes (Other)
  Sender: FDA-Public Use
  Company Number: JP-002147023-NVSJ2023JP004297

PATIENT
  Age: 34 Week
  Sex: Male

DRUGS (1)
  1. RANIBIZUMAB [Suspect]
     Active Substance: RANIBIZUMAB
     Indication: Retinopathy of prematurity
     Route: 050

REACTIONS (2)
  - Tractional retinal detachment [Unknown]
  - Disease progression [Unknown]
